FAERS Safety Report 13252826 (Version 3)
Quarter: 2018Q2

REPORT INFORMATION
  Report Type: Spontaneous
  Country: US (occurrence: US)
  Receive Date: 20170220
  Receipt Date: 20180524
  Transmission Date: 20180711
  Serious: No
  Sender: FDA-Public Use
  Company Number: US-ACADIA PHARMACEUTICALS INC.-ACA-2016-001333

PATIENT
  Sex: Female
  Weight: 56 kg

DRUGS (2)
  1. NUPLAZID [Suspect]
     Active Substance: PIMAVANSERIN TARTRATE
     Indication: PARKINSON^S DISEASE
     Dosage: 34 MG, QD
     Route: 048
     Dates: start: 20161116, end: 20180126
  2. LEVODOPA [Concomitant]
     Active Substance: LEVODOPA
     Indication: PRODUCT USED FOR UNKNOWN INDICATION
     Dosage: 9 TABLETS DAILY

REACTIONS (4)
  - Hallucination [Unknown]
  - Therapeutic response unexpected [Unknown]
  - Throat tightness [Not Recovered/Not Resolved]
  - Libido increased [Unknown]

NARRATIVE: CASE EVENT DATE: 2016
